FAERS Safety Report 15167023 (Version 2)
Quarter: 2018Q3

REPORT INFORMATION
  Report Type: Spontaneous
  Country: JP (occurrence: JP)
  Receive Date: 20180719
  Receipt Date: 20180817
  Transmission Date: 20181010
  Serious: Yes (Other)
  Sender: FDA-Public Use
  Company Number: JP-NAPPMUNDI-GBR-2018-0057680

PATIENT
  Age: 78 Year
  Sex: Male

DRUGS (5)
  1. CALCIUM CARBONATE W/COLECALCIFEROL [Concomitant]
     Active Substance: CALCIUM CARBONATE\CHOLECALCIFEROL
  2. OXYCONTIN [Suspect]
     Active Substance: OXYCODONE HYDROCHLORIDE
     Indication: CANCER PAIN
     Dosage: 40 MG, DAILY
     Route: 048
  3. DENOSUMAB [Concomitant]
     Active Substance: DENOSUMAB
  4. OXYCONTIN [Suspect]
     Active Substance: OXYCODONE HYDROCHLORIDE
     Dosage: 20 MG, DAILY
     Route: 048
  5. CALCIUM CARBONATE W/MAGNESIUM [Concomitant]

REACTIONS (2)
  - Renal failure [Recovering/Resolving]
  - Urinary retention [Unknown]
